FAERS Safety Report 4961724-0 (Version None)
Quarter: 2006Q1

REPORT INFORMATION
  Report Type: 
  Country: None (occurrence: None)
  Receive Date: 20060329
  Receipt Date: 20060316
  Transmission Date: 20060701
  Serious: Yes (Hospitalization)
  Sender: FDA-Public Use
  Company Number: LTI2003A00228

PATIENT
  Age: 34 Year
  Sex: Female

DRUGS (1)
  1. LEUPROLIDE ACETATE [Suspect]
     Indication: IN VITRO FERTILISATION
     Dosage: 3.75 MG (3.75 MG, 1 IN 28 D), INTRAMUSCUL.AR
     Route: 030
     Dates: start: 20030908, end: 20030908

REACTIONS (15)
  - ANAEMIA NEONATAL [None]
  - CAESAREAN SECTION [None]
  - CARDIAC MURMUR [None]
  - CHORIOAMNIONITIS [None]
  - DRUG EXPOSURE BEFORE PREGNANCY [None]
  - GASTROOESOPHAGEAL REFLUX DISEASE [None]
  - INFLAMMATION [None]
  - JAUNDICE NEONATAL [None]
  - LABORATORY TEST ABNORMAL [None]
  - NEONATAL RESPIRATORY DISTRESS SYNDROME [None]
  - PLACENTAL DISORDER [None]
  - PREMATURE BABY [None]
  - PREMATURE LABOUR [None]
  - THROMBOSIS [None]
  - UMBILICAL CORD ABNORMALITY [None]
